FAERS Safety Report 6798302-7 (Version None)
Quarter: 2010Q2

REPORT INFORMATION
  Report Type: 
  Country: None (occurrence: None)
  Receive Date: 20100623
  Receipt Date: 20100518
  Transmission Date: 20101027
  Serious: Yes (Other)
  Sender: FDA-Public Use
  Company Number: PI-04676-001

PATIENT

DRUGS (1)
  1. CHLORAPREP WITH TINT [Suspect]
     Dosage: 26 ML, MULTIPLE, TOPICAL

REACTIONS (1)
  - NO ADVERSE EVENT [None]
